FAERS Safety Report 6842091-4 (Version None)
Quarter: 2010Q3

REPORT INFORMATION
  Report Type: 
  Country: None (occurrence: None)
  Receive Date: 20100714
  Receipt Date: 20070722
  Transmission Date: 20110219
  Serious: No
  Sender: FDA-Public Use
  Company Number: US-PFIZER INC-2007061864

PATIENT
  Sex: Female
  Weight: 61.363 kg

DRUGS (6)
  1. CHANTIX [Suspect]
     Indication: SMOKING CESSATION THERAPY
     Dates: start: 20070601
  2. ESTRADIOL [Concomitant]
  3. PROVERA [Concomitant]
  4. CALCIUM WITH VITAMIN D [Concomitant]
  5. SOFTENERS, EMOLLIENTS [Concomitant]
  6. CODEINE [Concomitant]

REACTIONS (3)
  - ERYTHEMA [None]
  - NAUSEA [None]
  - RASH [None]
